FAERS Safety Report 12256874 (Version 1)
Quarter: 2016Q2

REPORT INFORMATION
  Report Type: Spontaneous
  Country: FR (occurrence: FR)
  Receive Date: 20160412
  Receipt Date: 20160412
  Transmission Date: 20160815
  Serious: Yes (Hospitalization)
  Sender: FDA-Public Use
  Company Number: FR-GLAXOSMITHKLINE-FR2016GSK046679

PATIENT
  Age: 36 Year
  Sex: Female

DRUGS (6)
  1. SPECIAFOLDINE [Concomitant]
     Active Substance: FOLIC ACID
  2. BENLYSTA [Suspect]
     Active Substance: BELIMUMAB
     Indication: CUTANEOUS LUPUS ERYTHEMATOSUS
     Dosage: UNK
     Route: 065
     Dates: start: 2015, end: 201601
  3. METOJECT [Concomitant]
     Active Substance: METHOTREXATE SODIUM
     Dosage: 1 UNK, WE
  4. CORTANCYL [Concomitant]
     Active Substance: PREDNISONE
  5. KARDEGIC [Concomitant]
     Active Substance: ASPIRIN LYSINE
  6. AERIUS [Concomitant]
     Active Substance: DESLORATADINE

REACTIONS (2)
  - Rash [Recovered/Resolved]
  - Dermatitis [Recovered/Resolved]

NARRATIVE: CASE EVENT DATE: 201602
